FAERS Safety Report 16777043 (Version 1)
Quarter: 2019Q4

REPORT INFORMATION
  Report Type: Spontaneous
  Country: US (occurrence: US)
  Receive Date: 20190905
  Receipt Date: 20190905
  Transmission Date: 20200122
  Serious: Yes (Death)
  Sender: FDA-Public Use
  Company Number: None

PATIENT
  Age: 70 Year
  Sex: Male

DRUGS (5)
  1. VEMLIDY [Suspect]
     Active Substance: TENOFOVIR ALAFENAMIDE FUMARATE
     Indication: METASTATIC CARCINOID TUMOUR
     Route: 048
     Dates: start: 20190403, end: 20190819
  2. SPIRONOLACTONE. [Concomitant]
     Active Substance: SPIRONOLACTONE
  3. FENTANYL. [Concomitant]
     Active Substance: FENTANYL
  4. OXYCODONE [Concomitant]
     Active Substance: OXYCODONE
  5. DRONABINOL. [Concomitant]
     Active Substance: DRONABINOL

REACTIONS (1)
  - Death [None]

NARRATIVE: CASE EVENT DATE: 20190819
